FAERS Safety Report 5813778-7 (Version None)
Quarter: 2008Q3

REPORT INFORMATION
  Report Type: 
  Country: None (occurrence: None)
  Receive Date: 20080717
  Receipt Date: 20080709
  Transmission Date: 20090109
  Serious: Yes (Death, Congenital Anomaly)
  Sender: FDA-Public Use
  Company Number: PHBS2008GB05087

PATIENT

DRUGS (2)
  1. GLEEVEC [Suspect]
     Dosage: MATERNAL DOSE: 400 MG/DAY
     Route: 064
  2. HYDROXYUREA [Concomitant]
     Route: 064

REACTIONS (3)
  - DRUG EXPOSURE DURING PREGNANCY [None]
  - MENINGOCELE [None]
  - STILLBIRTH [None]
